FAERS Safety Report 8268184 (Version 7)
Quarter: 2013Q2

REPORT INFORMATION
  Report Type: Report from Study
  Country: BE (occurrence: BE)
  Receive Date: 20111130
  Receipt Date: 20130531
  Transmission Date: 20140414
  Serious: Yes (Hospitalization)
  Sender: FDA-Public Use
  Company Number: BE-AMGEN-BELSP2011062210

PATIENT
  Age: 76 Year
  Sex: Male
  Weight: 53 kg

DRUGS (6)
  1. FILGRASTIM [Suspect]
     Indication: B-CELL LYMPHOMA
     Dosage: 6 MG, UNK
     Route: 058
     Dates: start: 20110826
  2. RITUXIMAB [Suspect]
     Indication: B-CELL LYMPHOMA
     Dosage: 608 MG, QD
     Route: 042
     Dates: start: 20110825
  3. PREDNISONE [Suspect]
     Indication: B-CELL LYMPHOMA
     Dosage: 100 MG, QD
     Route: 048
     Dates: start: 20110825
  4. CYCLOPHOSPHAMIDE [Suspect]
     Indication: B-CELL LYMPHOMA
     Dosage: 1215 MG, QD
     Route: 042
     Dates: start: 20110825
  5. DOXORUBICIN [Suspect]
     Indication: B-CELL LYMPHOMA
     Dosage: 81 MG, QD
     Route: 042
     Dates: start: 20110825
  6. VINCRISTINE [Suspect]
     Indication: B-CELL LYMPHOMA
     Dosage: 2 MG, QD
     Route: 042
     Dates: start: 20110825

REACTIONS (2)
  - Abdominal pain [Not Recovered/Not Resolved]
  - Small intestinal obstruction [Recovered/Resolved]
